FAERS Safety Report 14739021 (Version 2)
Quarter: 2019Q2

REPORT INFORMATION
  Report Type: Report from Study
  Country: US (occurrence: US)
  Receive Date: 20180410
  Receipt Date: 20190508
  Transmission Date: 20190711
  Serious: Yes (Hospitalization, Other)
  Sender: FDA-Public Use
  Company Number: US-BIOGEN-2018BI00550043

PATIENT
  Sex: Female

DRUGS (1)
  1. TYSABRI [Suspect]
     Active Substance: NATALIZUMAB
     Indication: MULTIPLE SCLEROSIS
     Route: 050
     Dates: start: 20150910

REACTIONS (5)
  - Aspiration [Unknown]
  - Mobility decreased [Unknown]
  - Diaphragmatic disorder [Unknown]
  - Rhinovirus infection [Unknown]
  - Pneumonia [Unknown]
